FAERS Safety Report 10084963 (Version 1)
Quarter: 2014Q2

REPORT INFORMATION
  Report Type: Spontaneous
  Country: US (occurrence: None)
  Receive Date: 20140409
  Receipt Date: 20140409
  Transmission Date: 20141212
  Serious: Yes (Other)
  Sender: FDA-Public Use
  Company Number: 2013-01816

PATIENT
  Age: 67 Year
  Sex: Male

DRUGS (9)
  1. SERTRALINE (UNKNOWN) (SERTRALINE) [Suspect]
     Indication: PRODUCT USED FOR UNKNOWN INDICATION
     Dosage: 1 IN 1 D
  2. DULOXETINE [Concomitant]
  3. ALPRAZOLAM [Concomitant]
  4. ROSUVASTATIN [Concomitant]
  5. METOPROLOL [Concomitant]
  6. AMLODIPINE [Concomitant]
  7. HYDROCHLOROTHIAZIDE + TRIAMTERENE [Concomitant]
  8. METFORMIN [Concomitant]
  9. SITAGLIPTIN [Concomitant]

REACTIONS (1)
  - Gynaecomastia [None]
